FAERS Safety Report 11893522 (Version 1)
Quarter: 2016Q1

REPORT INFORMATION
  Report Type: Other
  Country: GB (occurrence: GB)
  Receive Date: 20160106
  Receipt Date: 20160106
  Transmission Date: 20160526
  Serious: Yes (Hospitalization, Other)
  Sender: FDA-Public Use
  Company Number: GB-WARNER CHILCOTT, LLC-1046217

PATIENT
  Age: 31 Year
  Sex: Male

DRUGS (1)
  1. ASACOL [Suspect]
     Active Substance: MESALAMINE
     Indication: COLITIS ULCERATIVE
     Route: 048

REACTIONS (9)
  - Cardiogenic shock [None]
  - Dysarthria [None]
  - Myocarditis [None]
  - Chest pain [None]
  - Facial paralysis [None]
  - Language disorder [None]
  - Cardiomyopathy [None]
  - Hemiplegia [None]
  - Cerebral infarction [None]
